FAERS Safety Report 24028672 (Version 1)
Quarter: 2024Q2

REPORT INFORMATION
  Report Type: Report from Study
  Country: CA (occurrence: CA)
  Receive Date: 20240628
  Receipt Date: 20240628
  Transmission Date: 20240716
  Serious: Yes (Other)
  Sender: FDA-Public Use
  Company Number: CA-TAKEDA-2024TUS063758

PATIENT
  Sex: Female

DRUGS (3)
  1. VEDOLIZUMAB [Suspect]
     Active Substance: VEDOLIZUMAB
     Indication: Crohn^s disease
     Dosage: 300 MILLIGRAM
     Route: 042
     Dates: start: 20240610
  2. REMICADE [Concomitant]
     Active Substance: INFLIXIMAB
     Dosage: 10 MILLIGRAM
     Dates: start: 20231016
  3. Cortiment [Concomitant]
     Dosage: 9 MILLIGRAM
     Dates: start: 20230906

REACTIONS (1)
  - Crohn^s disease [Unknown]
